FAERS Safety Report 20737666 (Version 2)
Quarter: 2022Q2

REPORT INFORMATION
  Report Type: Spontaneous
  Country: US (occurrence: US)
  Receive Date: 20220422
  Receipt Date: 20220512
  Transmission Date: 20220721
  Serious: No
  Sender: FDA-Public Use
  Company Number: US-JNJFOC-20220434527

PATIENT
  Age: 52 Year
  Sex: Female
  Weight: 63.560 kg

DRUGS (1)
  1. TREMFYA [Suspect]
     Active Substance: GUSELKUMAB
     Indication: Product used for unknown indication
     Route: 065

REACTIONS (5)
  - Product dose omission issue [Unknown]
  - Device malfunction [Unknown]
  - Rash erythematous [Unknown]
  - Nodule [Unknown]
  - Acne [Unknown]

NARRATIVE: CASE EVENT DATE: 20220406
